FAERS Safety Report 21404772 (Version 2)
Quarter: 2022Q4

REPORT INFORMATION
  Report Type: Spontaneous
  Country: JP (occurrence: JP)
  Receive Date: 20221003
  Receipt Date: 20221012
  Transmission Date: 20230113
  Serious: Yes (Other)
  Sender: FDA-Public Use
  Company Number: JP-SA-2022SA396174

PATIENT
  Age: 84 Year
  Sex: Male

DRUGS (1)
  1. DOCETAXEL [Suspect]
     Active Substance: DOCETAXEL
     Indication: Gingival cancer
     Dosage: UNK, QW
     Route: 041

REACTIONS (2)
  - Pneumatosis intestinalis [Recovering/Resolving]
  - Loss of consciousness [Recovering/Resolving]
